FAERS Safety Report 24181243 (Version 2)
Quarter: 2024Q3

REPORT INFORMATION
  Report Type: Report from Study
  Country: DE (occurrence: DE)
  Receive Date: 20240807
  Receipt Date: 20240815
  Transmission Date: 20241017
  Serious: Yes (Hospitalization)
  Sender: ABBVIE
  Company Number: DE-ABBVIE-5867718

PATIENT
  Age: 66 Year
  Sex: Female

DRUGS (2)
  1. CARBIDOPA\LEVODOPA [Suspect]
     Active Substance: CARBIDOPA\LEVODOPA
     Indication: Parkinson^s disease
     Dosage: MD:8ML; CRT: 2.5 ML/H; ED: 1.0 ML
     Route: 050
     Dates: start: 20240213
  2. CARBIDOPA\LEVODOPA [Suspect]
     Active Substance: CARBIDOPA\LEVODOPA

REACTIONS (1)
  - Femur fracture [Recovering/Resolving]

NARRATIVE: CASE EVENT DATE: 20240731
